FAERS Safety Report 6644700-1 (Version None)
Quarter: 2010Q1

REPORT INFORMATION
  Report Type: 
  Country: None (occurrence: None)
  Receive Date: 20100322
  Receipt Date: 20100310
  Transmission Date: 20100710
  Serious: Yes (Hospitalization)
  Sender: FDA-Public Use
  Company Number: CA-SANOFI-AVENTIS-2010SA014010

PATIENT
  Age: 67 Year
  Sex: Male

DRUGS (19)
  1. OXALIPLATIN [Suspect]
     Indication: COLORECTAL CANCER
     Route: 041
     Dates: start: 20090406, end: 20090406
  2. OXALIPLATIN [Suspect]
     Route: 041
  3. CAPECITABINE [Suspect]
     Indication: COLORECTAL CANCER
     Route: 048
     Dates: start: 20090406
  4. CAPECITABINE [Suspect]
     Route: 048
  5. BEVACIZUMAB [Suspect]
     Indication: COLORECTAL CANCER
     Route: 041
     Dates: start: 20090324, end: 20090324
  6. BEVACIZUMAB [Suspect]
     Route: 041
  7. EFFEXOR [Concomitant]
     Dates: start: 19990101
  8. ZOPLICONE [Concomitant]
     Dates: start: 20090301
  9. ACETAMINOPHEN AND TRAMADOL HCL [Concomitant]
     Dates: start: 20090301, end: 20090323
  10. TYLENOL-500 [Concomitant]
     Dates: start: 20090101, end: 20090601
  11. VITAMIN B COMPLEX CAP [Concomitant]
     Dates: start: 19840101
  12. VITAMIN A [Concomitant]
     Dates: start: 19840101
  13. GLUCOSAMINE [Concomitant]
     Dates: start: 19990101, end: 20090624
  14. VITAMIN C [Concomitant]
     Dates: start: 20090101
  15. VITAMIN E [Concomitant]
     Dates: start: 19840101, end: 20090624
  16. AMLODIPINE [Concomitant]
     Dates: start: 20090301, end: 20090624
  17. ACETAMINOPHEN AND TRAMADOL HCL [Concomitant]
     Dates: start: 20090324, end: 20090601
  18. IMODIUM [Concomitant]
     Dates: start: 20090421, end: 20090421
  19. TAMSULOSIN HCL [Concomitant]

REACTIONS (1)
  - NECROSIS [None]
